FAERS Safety Report 7918116-1 (Version None)
Quarter: 2011Q4

REPORT INFORMATION
  Report Type: 
  Country: None (occurrence: None)
  Receive Date: 20111116
  Receipt Date: 20111108
  Transmission Date: 20120403
  Serious: No
  Sender: FDA-Public Use
  Company Number: US-BAYER-2011-108902

PATIENT
  Age: 60 Year
  Sex: Male
  Weight: 88.435 kg

DRUGS (4)
  1. ALEVE (CAPLET) [Suspect]
     Indication: BACK PAIN
     Dosage: 440 MG, QD, BOTTLE COUNT 250S
     Route: 048
     Dates: start: 20060101
  2. SIMVASTATIN [Concomitant]
  3. LEVOTHYROXINE SODIUM [Concomitant]
  4. OMAZERPAROL [Concomitant]

REACTIONS (2)
  - BACK PAIN [None]
  - NO ADVERSE EVENT [None]
